FAERS Safety Report 10004571 (Version 1)
Quarter: 2014Q1

REPORT INFORMATION
  Report Type: Spontaneous
  Country: CN (occurrence: CN)
  Receive Date: 20140312
  Receipt Date: 20140312
  Transmission Date: 20141002
  Serious: Yes (Hospitalization, Other)
  Sender: FDA-Public Use
  Company Number: CN-PFIZER INC-2014068184

PATIENT
  Age: 82 Year
  Sex: Female

DRUGS (2)
  1. MS CONTIN [Suspect]
     Indication: PAIN
     Dosage: UNK
     Dates: end: 20140105
  2. MS CONTIN [Suspect]
     Dosage: 70 MG, 2X/DAY
     Route: 048
     Dates: start: 20140106, end: 20140110

REACTIONS (3)
  - Haemoptysis [Recovered/Resolved]
  - Drug ineffective [Recovered/Resolved]
  - Pain [Recovered/Resolved]
